FAERS Safety Report 24442477 (Version 4)
Quarter: 2025Q2

REPORT INFORMATION
  Report Type: Spontaneous
  Country: US (occurrence: US)
  Receive Date: 20241016
  Receipt Date: 20250514
  Transmission Date: 20250717
  Serious: No
  Sender: ROCHE
  Company Number: US-ROCHE-3548201

PATIENT
  Age: 7 Year
  Sex: Male

DRUGS (2)
  1. HEMLIBRA [Suspect]
     Active Substance: EMICIZUMAB-KXWH
     Indication: Factor VIII deficiency
     Dosage: STRENGTH 105MG/0.7ML
     Route: 058
     Dates: start: 202002
  2. HEMLIBRA [Suspect]
     Active Substance: EMICIZUMAB-KXWH
     Dosage: STRENGTH 105MG/0.7ML
     Route: 058
     Dates: start: 202002

REACTIONS (4)
  - Mouth haemorrhage [Unknown]
  - Loose tooth [Unknown]
  - Haemorrhage [Unknown]
  - Toothache [Unknown]

NARRATIVE: CASE EVENT DATE: 20250428
